FAERS Safety Report 13662108 (Version 13)
Quarter: 2018Q3

REPORT INFORMATION
  Report Type: Spontaneous
  Country: US (occurrence: US)
  Receive Date: 20170616
  Receipt Date: 20180919
  Transmission Date: 20181010
  Serious: Yes (Death, Hospitalization)
  Sender: FDA-Public Use
  Company Number: US-ACTELION-A-US2017-155416

PATIENT
  Age: 65 Year
  Sex: Female
  Weight: 49.89 kg

DRUGS (4)
  1. TRACLEER [Suspect]
     Active Substance: BOSENTAN
     Indication: PULMONARY HYPERTENSION
     Dosage: 125 MG, BID
     Route: 048
     Dates: start: 200611, end: 20180827
  2. ADCIRCA [Concomitant]
     Active Substance: TADALAFIL
     Dosage: 40 MG, QD
     Dates: start: 201512, end: 20180827
  3. VELETRI [Suspect]
     Active Substance: EPOPROSTENOL
     Indication: PULMONARY HYPERTENSION
     Dosage: 55 NG/KG, PER MIN
     Route: 042
     Dates: start: 20120614
  4. VELETRI [Suspect]
     Active Substance: EPOPROSTENOL
     Dosage: 57 NG/KG, PER MIN
     Route: 042

REACTIONS (18)
  - Gastrointestinal disorder [Unknown]
  - Large intestinal stenosis [Recovered/Resolved]
  - Diarrhoea [Not Recovered/Not Resolved]
  - Septic shock [Fatal]
  - Vomiting [Unknown]
  - Multiple organ dysfunction syndrome [Fatal]
  - Pelvic abscess [Unknown]
  - Pain in extremity [Unknown]
  - Malaise [Unknown]
  - Gastrointestinal anastomotic leak [Unknown]
  - Decreased appetite [Unknown]
  - Peritonitis [Unknown]
  - Colostomy [Recovered/Resolved]
  - Clostridium difficile colitis [Unknown]
  - Abdominal pain [Recovered/Resolved]
  - Fatigue [Recovered/Resolved]
  - Weight decreased [Unknown]
  - Pain in jaw [Not Recovered/Not Resolved]

NARRATIVE: CASE EVENT DATE: 20180709
